FAERS Safety Report 4687169-9 (Version None)
Quarter: 2005Q2

REPORT INFORMATION
  Report Type: 
  Country: None (occurrence: None)
  Receive Date: 20050607
  Receipt Date: 20050523
  Transmission Date: 20051028
  Serious: Yes (Other)
  Sender: FDA-Public Use
  Company Number: USA050494867

PATIENT
  Sex: Male

DRUGS (2)
  1. CYMBALTA [Suspect]
     Dosage: 30 MG
  2. WELLBUTRIN [Concomitant]

REACTIONS (2)
  - GRAND MAL CONVULSION [None]
  - POSTICTAL STATE [None]
